FAERS Safety Report 5973009-4 (Version None)
Quarter: 2008Q4

REPORT INFORMATION
  Report Type: 
  Country: None (occurrence: None)
  Receive Date: 20081201
  Receipt Date: 20081127
  Transmission Date: 20090506
  Serious: Yes (Death)
  Sender: FDA-Public Use
  Company Number: PHHY2008JP29981

PATIENT
  Age: 65 Year
  Sex: Female

DRUGS (3)
  1. TEGRETOL [Suspect]
     Dosage: UNK
     Route: 048
  2. DEPAS [Concomitant]
     Route: 048
  3. SERTRALINE HYDROCHLORIDE [Concomitant]
     Route: 048

REACTIONS (3)
  - DROWNING [None]
  - DRUG TOXICITY [None]
  - SUICIDE ATTEMPT [None]
